FAERS Safety Report 4789934-6 (Version None)
Quarter: 2005Q4

REPORT INFORMATION
  Report Type: 
  Country: None (occurrence: None)
  Receive Date: 20051006
  Receipt Date: 20050930
  Transmission Date: 20060501
  Serious: Yes (Death)
  Sender: FDA-Public Use
  Company Number: 2005AC01559

PATIENT
  Age: 34 Year
  Sex: Male

DRUGS (6)
  1. AMITRIPTYLINE HCL [Suspect]
     Indication: DEPRESSION
     Route: 048
  2. TRAMADOL HYDROCHLORIDE/ACETAMINOPHEN [Suspect]
     Indication: PAIN
     Route: 048
  3. METAXALONE [Concomitant]
  4. OXYCODONE HCL [Concomitant]
  5. CYCLOBENZAPRINE HCL [Concomitant]
  6. IBUPROFEN [Concomitant]

REACTIONS (4)
  - COMPLETED SUICIDE [None]
  - DRUG TOXICITY [None]
  - OVERDOSE [None]
  - PULMONARY CONGESTION [None]
